FAERS Safety Report 4738885-1 (Version None)
Quarter: 2005Q3

REPORT INFORMATION
  Report Type: 
  Country: None (occurrence: None)
  Receive Date: 20050804
  Receipt Date: 20050729
  Transmission Date: 20060218
  Serious: Yes (Hospitalization)
  Sender: FDA-Public Use
  Company Number: 200512375GDS

PATIENT
  Age: 73 Year
  Sex: Female

DRUGS (4)
  1. ASPIRIN [Suspect]
     Dosage: 100 MG, QD, ORAL
     Route: 048
     Dates: end: 20050501
  2. VALPROIC ACID [Suspect]
     Dosage: 500 MG, QD, ORAL
     Route: 048
     Dates: end: 20050501
  3. TOPIRAMATE [Concomitant]
  4. LISINOPRIL [Concomitant]

REACTIONS (5)
  - ANAEMIA [None]
  - EPISTAXIS [None]
  - GASTRITIS HAEMORRHAGIC [None]
  - MELAENA [None]
  - THROMBOCYTOPENIA [None]
